FAERS Safety Report 10783608 (Version 1)
Quarter: 2015Q1

REPORT INFORMATION
  Report Type: Spontaneous
  Country: NO (occurrence: NO)
  Receive Date: 20150210
  Receipt Date: 20150210
  Transmission Date: 20150721
  Serious: Yes (Other)
  Sender: FDA-Public Use
  Company Number: NO-WATSON-2015-01867

PATIENT
  Sex: Female

DRUGS (2)
  1. LAMOTRIGINE (UNKNOWN) [Suspect]
     Active Substance: LAMOTRIGINE
     Indication: PRODUCT USED FOR UNKNOWN INDICATION
     Dosage: UNK
     Route: 065
  2. KETAMINE (UNKNOWN) [Interacting]
     Active Substance: KETAMINE
     Indication: PRODUCT USED FOR UNKNOWN INDICATION
     Dosage: UNK
     Route: 065

REACTIONS (12)
  - Overdose [Unknown]
  - Antipsychotic drug level above therapeutic [Unknown]
  - Nystagmus [Recovered/Resolved]
  - Seizure [Recovered/Resolved]
  - Ataxia [Recovered/Resolved]
  - Agitation [Recovered/Resolved]
  - Tachycardia [Recovered/Resolved]
  - Aggression [Recovered/Resolved]
  - Drug interaction [Unknown]
  - Treatment failure [Unknown]
  - Abnormal behaviour [Recovered/Resolved]
  - Euphoric mood [Recovered/Resolved]
